FAERS Safety Report 7519411-0 (Version None)
Quarter: 2011Q2

REPORT INFORMATION
  Report Type: 
  Country: None (occurrence: None)
  Receive Date: 20110602
  Receipt Date: 20110524
  Transmission Date: 20111010
  Serious: Yes (Hospitalization)
  Sender: FDA-Public Use
  Company Number: US-ASTRAZENECA-2011SE31827

PATIENT
  Age: 55 Year
  Sex: Female

DRUGS (6)
  1. NEXIUM [Suspect]
     Indication: BARRETT'S OESOPHAGUS
     Route: 048
     Dates: start: 20010101
  2. ATENOLOL [Suspect]
     Route: 065
  3. MAGNESIUM SUPPLEMENT [Concomitant]
  4. FERROUS SULFATE TAB [Concomitant]
  5. MANY MEDS [Concomitant]
  6. CHOLESTEROL MED [Concomitant]

REACTIONS (4)
  - HEART RATE INCREASED [None]
  - HEART RATE IRREGULAR [None]
  - HYPOMAGNESAEMIA [None]
  - DIABETES MELLITUS [None]
